FAERS Safety Report 17125306 (Version 2)
Quarter: 2019Q4

REPORT INFORMATION
  Report Type: Spontaneous
  Country: JP (occurrence: JP)
  Receive Date: 20191207
  Receipt Date: 20191218
  Transmission Date: 20200122
  Serious: Yes (Other)
  Sender: FDA-Public Use
  Company Number: JP-ROCHE-2491562

PATIENT
  Age: 56 Year
  Sex: Female
  Weight: 59 kg

DRUGS (8)
  1. CISPLATIN. [Concomitant]
     Active Substance: CISPLATIN
     Indication: CERVIX CARCINOMA
     Dosage: DOSAGE IS UNCERTAIN
     Route: 041
     Dates: start: 20190724, end: 20191107
  2. DEXART [Concomitant]
     Active Substance: DEXAMETHASONE SODIUM PHOSPHATE
     Dosage: DOSAGE IS UNCERTAIN
     Route: 051
     Dates: start: 20190724, end: 20191107
  3. FAMOTIDINE. [Concomitant]
     Active Substance: FAMOTIDINE
     Dosage: DOSAGE IS UNCERTAIN
     Route: 051
     Dates: start: 20190724, end: 20191107
  4. GRANISETRON HYDROCHLORIDE. [Concomitant]
     Active Substance: GRANISETRON HYDROCHLORIDE
     Dosage: DOSAGE IS UNCERTAIN
     Route: 065
     Dates: start: 20190724, end: 20191107
  5. MANNITOL. [Concomitant]
     Active Substance: MANNITOL
     Dosage: DOSAGE IS UNCERTAIN
     Route: 051
     Dates: start: 20190724, end: 20191107
  6. DIPHENHYDRAMINE HYDROCHLORIDE. [Concomitant]
     Active Substance: DIPHENHYDRAMINE HYDROCHLORIDE
     Dosage: DOSAGE IS UNCERTAIN
     Route: 065
     Dates: start: 20190724, end: 20191107
  7. PACLITAXEL. [Concomitant]
     Active Substance: PACLITAXEL
     Indication: CERVIX CARCINOMA
     Dosage: DOSAGE IS UNCERTAIN
     Route: 041
     Dates: start: 20190724, end: 20191107
  8. AVASTIN [Suspect]
     Active Substance: BEVACIZUMAB
     Indication: CERVIX CARCINOMA
     Route: 041
     Dates: start: 201907, end: 201911

REACTIONS (2)
  - Dyslipidaemia [Unknown]
  - Blood pressure increased [Recovering/Resolving]

NARRATIVE: CASE EVENT DATE: 20190724
